FAERS Safety Report 24000376 (Version 1)
Quarter: 2024Q2

REPORT INFORMATION
  Report Type: Spontaneous
  Country: PT (occurrence: PT)
  Receive Date: 20240621
  Receipt Date: 20240621
  Transmission Date: 20240716
  Serious: Yes (Other)
  Sender: FDA-Public Use
  Company Number: None

PATIENT
  Age: 81 Year
  Sex: Female
  Weight: 56 kg

DRUGS (2)
  1. MANNITOL [Suspect]
     Active Substance: MANNITOL
     Indication: Diagnostic procedure
     Dosage: ROUTE OF ADMIN: INTRAVENOUS?FORM OF ADMIN: SOLUTION FOR INFUSION
     Dates: start: 20240529, end: 20240529
  2. ULTRAVIST [Suspect]
     Active Substance: IOPROMIDE
     Indication: Diagnostic procedure
     Dosage: NOT APPLICABLE?FOA: SOLUTION FOR INJECTION
     Route: 042
     Dates: start: 20240529, end: 20240529

REACTIONS (2)
  - Rash [Recovered/Resolved]
  - Dysphonia [Recovered/Resolved]

NARRATIVE: CASE EVENT DATE: 20240529
